FAERS Safety Report 19052452 (Version 2)
Quarter: 2021Q2

REPORT INFORMATION
  Report Type: Report from Study
  Country: None (occurrence: US)
  Receive Date: 20210324
  Receipt Date: 20210406
  Transmission Date: 20210717
  Serious: Yes (Hospitalization, Other)
  Sender: FDA-Public Use
  Company Number: US-ABBVIE-21K-163-3826361-00

PATIENT
  Age: 56 Year
  Sex: Female
  Weight: 62.2 kg

DRUGS (6)
  1. EVION [Concomitant]
     Active Substance: .ALPHA.-TOCOPHEROL ACETATE
     Indication: PRODUCT USED FOR UNKNOWN INDICATION
  2. CALCIUM [Concomitant]
     Active Substance: CALCIUM
     Indication: SUPPLEMENTATION THERAPY
  3. VITAMIN D [Concomitant]
     Active Substance: VITAMIN D NOS
     Indication: SUPPLEMENTATION THERAPY
  4. RINVOQ [Suspect]
     Active Substance: UPADACITINIB
     Indication: RHEUMATOID ARTHRITIS
     Route: 048
     Dates: start: 20210125, end: 20210309
  5. PREDNISONE. [Concomitant]
     Active Substance: PREDNISONE
     Indication: RHEUMATOID ARTHRITIS
  6. LEFLUNOMIDE. [Concomitant]
     Active Substance: LEFLUNOMIDE
     Indication: RHEUMATOID ARTHRITIS

REACTIONS (5)
  - Metatarsal excision [Recovering/Resolving]
  - Haemoglobin decreased [Not Recovered/Not Resolved]
  - Toe amputation [Recovering/Resolving]
  - Staphylococcal infection [Recovering/Resolving]
  - Osteomyelitis [Recovering/Resolving]

NARRATIVE: CASE EVENT DATE: 20210311
